FAERS Safety Report 10189929 (Version 2)
Quarter: 2014Q2

REPORT INFORMATION
  Report Type: Spontaneous
  Country: US (occurrence: US)
  Receive Date: 20140522
  Receipt Date: 20140522
  Transmission Date: 20141212
  Serious: No
  Sender: FDA-Public Use
  Company Number: US-ASTRAZENECA-2013SE72620

PATIENT
  Age: 66 Year
  Sex: Female
  Weight: 70.3 kg

DRUGS (7)
  1. PULMICORT FLEXHALER [Suspect]
     Indication: ASTHMA
     Dosage: 180 MCG 1 PUFF, BID
     Route: 055
     Dates: start: 20130911
  2. SYMBICORT  PMDI [Suspect]
     Indication: ASTHMA
     Dosage: 160/4.5 MCG, 1 PUFF, BID
     Route: 055
  3. SYMBICORT  PMDI [Suspect]
     Indication: ASTHMA
     Dosage: 160/4.5 MCG, 1 PUFF, BID
     Route: 055
  4. LEVOTHYROXINE [Concomitant]
     Indication: HYPOTHYROIDISM
  5. FLUTICASONE PROPITIATE [Concomitant]
     Dosage: BID
     Route: 045
  6. MONTELUKAST [Concomitant]
  7. LORATIDINE [Concomitant]
     Dosage: PRN

REACTIONS (6)
  - Chest discomfort [Not Recovered/Not Resolved]
  - Condition aggravated [Unknown]
  - Vomiting [Recovered/Resolved]
  - Nausea [Recovered/Resolved]
  - Cough [Not Recovered/Not Resolved]
  - Off label use [Unknown]
